FAERS Safety Report 15515253 (Version 3)
Quarter: 2018Q4

REPORT INFORMATION
  Report Type: Spontaneous
  Country: US (occurrence: US)
  Receive Date: 20181017
  Receipt Date: 20181122
  Transmission Date: 20190205
  Serious: Yes (Other)
  Sender: FDA-Public Use
  Company Number: US-HBP-2016US016465

PATIENT
  Sex: Female

DRUGS (1)
  1. VALCHLOR [Suspect]
     Active Substance: MECHLORETHAMINE
     Indication: MYCOSIS FUNGOIDES
     Dosage: APPLY TO AFFECTED AREA DAILY
     Route: 061
     Dates: start: 20160505

REACTIONS (4)
  - Blister [Not Recovered/Not Resolved]
  - Malaise [Unknown]
  - Nasopharyngitis [Not Recovered/Not Resolved]
  - Malignant neoplasm progression [Not Recovered/Not Resolved]
